FAERS Safety Report 16124216 (Version 1)
Quarter: 2019Q1

REPORT INFORMATION
  Report Type: Spontaneous
  Country: US (occurrence: US)
  Receive Date: 20190327
  Receipt Date: 20190327
  Transmission Date: 20190418
  Serious: Yes (Other)
  Sender: FDA-Public Use
  Company Number: US-ANIPHARMA-2018-US-020799

PATIENT
  Age: 53 Year
  Sex: Male

DRUGS (6)
  1. FIRMAGON [Suspect]
     Active Substance: DEGARELIX ACETATE
  2. ABIRATERONE. [Suspect]
     Active Substance: ABIRATERONE ACETATE
  3. XTANDI [Suspect]
     Active Substance: ENZALUTAMIDE
  4. CASODEX [Suspect]
     Active Substance: BICALUTAMIDE
     Indication: PROSTATE CANCER METASTATIC
     Route: 048
  5. PREDNISONE. [Suspect]
     Active Substance: PREDNISONE
  6. DOCETAXEL. [Suspect]
     Active Substance: DOCETAXEL

REACTIONS (2)
  - Drug ineffective [Unknown]
  - Malignant neoplasm progression [Unknown]
